FAERS Safety Report 19661359 (Version 1)
Quarter: 2021Q3

REPORT INFORMATION
  Report Type: Spontaneous
  Country: IT (occurrence: IT)
  Receive Date: 20210805
  Receipt Date: 20210805
  Transmission Date: 20211014
  Serious: Yes (Life-Threatening, Hospitalization)
  Sender: FDA-Public Use
  Company Number: IT-SLATE RUN PHARMACEUTICALS-21IT000606

PATIENT

DRUGS (6)
  1. BETAMETHASONE. [Concomitant]
     Active Substance: BETAMETHASONE
     Indication: MATERNAL EXPOSURE TIMING UNSPECIFIED
     Route: 015
  2. OXYGEN. [Concomitant]
     Active Substance: OXYGEN
     Indication: MATERNAL EXPOSURE TIMING UNSPECIFIED
     Route: 015
  3. CLARITHROMYCIN. [Concomitant]
     Active Substance: CLARITHROMYCIN
     Indication: MATERNAL EXPOSURE TIMING UNSPECIFIED
     Route: 015
  4. ENOXAPARIN SODIUM. [Concomitant]
     Active Substance: ENOXAPARIN SODIUM
     Indication: MATERNAL EXPOSURE TIMING UNSPECIFIED
     Route: 015
  5. VANCOMYCIN HYDROCHLORIDE USP [Suspect]
     Active Substance: VANCOMYCIN HYDROCHLORIDE
     Indication: MATERNAL EXPOSURE TIMING UNSPECIFIED
     Dosage: 2 GRAM, QD
     Route: 015
  6. HYPERIMMUNE PLASMA COVID?19 [Concomitant]
     Active Substance: COVID-19 CONVALESCENT PLASMA
     Indication: MATERNAL EXPOSURE TIMING UNSPECIFIED
     Route: 015

REACTIONS (5)
  - Apgar score low [Unknown]
  - Premature baby [Unknown]
  - Neonatal respiratory failure [Unknown]
  - Foetal exposure during pregnancy [Unknown]
  - Hypotonia neonatal [Unknown]
